FAERS Safety Report 8498944-7 (Version None)
Quarter: 2012Q3

REPORT INFORMATION
  Report Type: 
  Country: None (occurrence: None)
  Receive Date: 20120710
  Receipt Date: 20120702
  Transmission Date: 20120928
  Serious: No
  Sender: FDA-Public Use
  Company Number: US-BIOGENIDEC-2012BI023441

PATIENT
  Age: 35 Year
  Sex: Male

DRUGS (2)
  1. TYSABRI [Suspect]
     Indication: MULTIPLE SCLEROSIS
     Route: 042
     Dates: start: 20090211, end: 20100910
  2. TYSABRI [Suspect]
     Route: 042
     Dates: start: 20110914

REACTIONS (1)
  - MULTIPLE SCLEROSIS RELAPSE [None]
